FAERS Safety Report 20050176 (Version 2)
Quarter: 2022Q1

REPORT INFORMATION
  Report Type: Spontaneous
  Country: US (occurrence: US)
  Receive Date: 20211109
  Receipt Date: 20220205
  Transmission Date: 20220424
  Serious: No
  Sender: FDA-Public Use
  Company Number: US-BIOGEN-2021BI01066268

PATIENT
  Age: 48 Year
  Sex: Female

DRUGS (2)
  1. TECFIDERA [Suspect]
     Active Substance: DIMETHYL FUMARATE
     Indication: Multiple sclerosis
     Route: 048
     Dates: start: 20211023
  2. TECFIDERA [Suspect]
     Active Substance: DIMETHYL FUMARATE
     Route: 048
     Dates: start: 202110, end: 20211116

REACTIONS (7)
  - Product dose omission issue [Unknown]
  - Fatigue [Unknown]
  - Alopecia [Unknown]
  - Rash pruritic [Unknown]
  - Dry skin [Unknown]
  - Abdominal pain upper [Unknown]
  - Pruritus [Unknown]

NARRATIVE: CASE EVENT DATE: 20211023
